FAERS Safety Report 10593080 (Version 1)
Quarter: 2014Q4

REPORT INFORMATION
  Report Type: Spontaneous
  Country: US (occurrence: None)
  Receive Date: 20141118
  Receipt Date: 20141118
  Transmission Date: 20150529
  Serious: No
  Sender: FDA-Public Use
  Company Number: None

PATIENT
  Age: 61 Year
  Sex: Female

DRUGS (2)
  1. OSPHENA [Suspect]
     Active Substance: OSPEMIFENE
     Indication: DYSPAREUNIA
     Dosage: 5 TABLETS ONCE DAILY TAKEN BY MOUTH
     Route: 048
     Dates: start: 20141113, end: 20141114
  2. OSPHENA [Suspect]
     Active Substance: OSPEMIFENE
     Indication: MENOPAUSE
     Dosage: 5 TABLETS ONCE DAILY TAKEN BY MOUTH
     Route: 048
     Dates: start: 20141113, end: 20141114

REACTIONS (1)
  - Rash pruritic [None]

NARRATIVE: CASE EVENT DATE: 20141114
